FAERS Safety Report 6106146-4 (Version None)
Quarter: 2009Q1

REPORT INFORMATION
  Report Type: 
  Country: None (occurrence: None)
  Receive Date: 20090306
  Receipt Date: 20090303
  Transmission Date: 20090719
  Serious: Yes (Death, Other)
  Sender: FDA-Public Use
  Company Number: FR-WYE-G02735508

PATIENT
  Age: 40 Year
  Sex: Female

DRUGS (1)
  1. EFFEXOR [Suspect]
     Dosage: OVERDOSE AMOUNT = 4500 MG (30 CAPSULES OF EFFEXOR LP 150 MG STRENGTH)
     Route: 048
     Dates: start: 20081101, end: 20081101

REACTIONS (5)
  - COMA [None]
  - COMPLETED SUICIDE [None]
  - INTENTIONAL OVERDOSE [None]
  - MALAISE [None]
  - SEROTONIN SYNDROME [None]
